FAERS Safety Report 11639937 (Version 3)
Quarter: 2015Q4

REPORT INFORMATION
  Report Type: Report from Study
  Country: CA (occurrence: CA)
  Receive Date: 20151019
  Receipt Date: 20151126
  Transmission Date: 20160304
  Serious: Yes (Hospitalization, Other)
  Sender: FDA-Public Use
  Company Number: CA-AMGEN-CANSL2015107924

PATIENT
  Age: 79 Year
  Sex: Male
  Weight: 81.63 kg

DRUGS (6)
  1. FLOMAX [Concomitant]
     Active Substance: TAMSULOSIN HYDROCHLORIDE
     Indication: BENIGN PROSTATIC HYPERPLASIA
     Dosage: 0.4 MG, UNK
     Route: 048
     Dates: start: 2008
  2. PROLIA [Suspect]
     Active Substance: DENOSUMAB
     Indication: OSTEOPOROSIS
     Dosage: 60 MG, Q6MO
     Route: 058
     Dates: start: 201306, end: 20150820
  3. TEGRETOL [Concomitant]
     Active Substance: CARBAMAZEPINE
     Indication: TRIGEMINAL NEURALGIA
     Dosage: 200 MG, UNK
     Route: 048
     Dates: start: 2011
  4. AVALIDE [Concomitant]
     Active Substance: HYDROCHLOROTHIAZIDE\IRBESARTAN
     Indication: HYPERTENSION
     Dosage: 300/12.5 MG, UNK
     Route: 048
     Dates: start: 2013
  5. SYNTHROID [Concomitant]
     Active Substance: LEVOTHYROXINE SODIUM
     Indication: HYPOTHYROIDISM
     Dosage: 0.075 UNK, UNK
     Route: 048
     Dates: start: 2013
  6. BACLOFEN. [Concomitant]
     Active Substance: BACLOFEN
     Indication: MULTIPLE SCLEROSIS
     Dosage: 10 MG, UNK
     Route: 048

REACTIONS (1)
  - Cerebrovascular accident [Recovering/Resolving]

NARRATIVE: CASE EVENT DATE: 201509
